FAERS Safety Report 7084968-3 (Version None)
Quarter: 2010Q4

REPORT INFORMATION
  Report Type: 
  Country: None (occurrence: None)
  Receive Date: 20101027
  Receipt Date: 20101021
  Transmission Date: 20110411
  Serious: Yes (Other)
  Sender: FDA-Public Use
  Company Number: 2010SP006834

PATIENT
  Age: 6 Year
  Sex: Male

DRUGS (2)
  1. DIPRODERM (TOPICAL) (BETAMETHASONE DIPROPIONATE) [Suspect]
     Indication: PHIMOSIS
     Dates: start: 20091228
  2. REVAXIS /00315001/ [Concomitant]

REACTIONS (1)
  - TYPE 1 DIABETES MELLITUS [None]
